FAERS Safety Report 12722332 (Version 1)
Quarter: 2016Q3

REPORT INFORMATION
  Report Type: Other
  Country: US (occurrence: US)
  Receive Date: 20160907
  Receipt Date: 20160907
  Transmission Date: 20161109
  Serious: No
  Sender: FDA-Public Use
  Company Number: US-COL_21554_2015

PATIENT
  Age: 76 Year
  Sex: Female

DRUGS (2)
  1. COLGATE TOTAL WHITENING [Suspect]
     Active Substance: SODIUM FLUORIDE\TRICLOSAN
     Dosage: A PEA SIZE OR MAYBE EVEN LESS THAN A PEA SIZE AMOUNT/ BID/
     Route: 048
     Dates: start: 201511, end: 2015
  2. COLGATE TOTAL WHITENING [Suspect]
     Active Substance: SODIUM FLUORIDE\TRICLOSAN
     Indication: PRODUCT USED FOR UNKNOWN INDICATION
     Dosage: A PEA SIZE OR MAYBE EVEN LESS THAN A PEA SIZE AMOUNT/ BID/
     Route: 048
     Dates: start: 20151207, end: 20151207

REACTIONS (5)
  - Similar reaction on previous exposure to drug [None]
  - Oral discomfort [Recovering/Resolving]
  - Tongue discomfort [Recovering/Resolving]
  - Feeling abnormal [Unknown]
  - Oral pain [Unknown]

NARRATIVE: CASE EVENT DATE: 201511
